FAERS Safety Report 6615896-2 (Version None)
Quarter: 2010Q1

REPORT INFORMATION
  Report Type: 
  Country: None (occurrence: None)
  Receive Date: 20100305
  Receipt Date: 20100224
  Transmission Date: 20100710
  Serious: Yes (Hospitalization)
  Sender: FDA-Public Use
  Company Number: TR-ELI_LILLY_AND_COMPANY-TR201003000240

PATIENT
  Age: 36 Year
  Sex: Female

DRUGS (6)
  1. HUMULIN R [Suspect]
     Indication: GESTATIONAL DIABETES
     Dosage: 8 IU, EACH MORNING
     Route: 058
     Dates: start: 20090101
  2. HUMULIN R [Suspect]
     Dosage: 8 IU, OTHER
     Route: 058
     Dates: start: 20090101
  3. HUMULIN R [Suspect]
     Dosage: 8 IU, EACH EVENING
     Route: 058
     Dates: start: 20090101
  4. HUMULIN N [Suspect]
     Indication: GESTATIONAL DIABETES
     Dosage: 14 IU, DAILY (1/D)
     Route: 058
     Dates: start: 20090101
  5. ELEVIT [Concomitant]
     Indication: VITAMIN SUPPLEMENTATION
     Dosage: UNK UNK, DAILY (1/D)
     Route: 048
     Dates: start: 20090801
  6. FERRO SANOL /00023514/ [Concomitant]
     Indication: MINERAL SUPPLEMENTATION
     Dosage: UNK UNK, DAILY (1/D)
     Route: 048
     Dates: start: 20090801

REACTIONS (2)
  - DRUG EXPOSURE DURING PREGNANCY [None]
  - LABOUR PAIN [None]
